FAERS Safety Report 18532419 (Version 1)
Quarter: 2020Q4

REPORT INFORMATION
  Report Type: Spontaneous
  Country: US (occurrence: US)
  Receive Date: 20201123
  Receipt Date: 20201123
  Transmission Date: 20210114
  Serious: Yes (Other)
  Sender: FDA-Public Use
  Company Number: US-AUROBINDO-AUR-APL-2020-007945

PATIENT
  Sex: Female

DRUGS (1)
  1. LOSARTAN POTASSIUM AND HYDROCHLOROTHIAZIDE TABLETS 100 MG/25 MG [Suspect]
     Active Substance: HYDROCHLOROTHIAZIDE\LOSARTAN POTASSIUM
     Indication: PRODUCT USED FOR UNKNOWN INDICATION
     Dosage: UNK
     Route: 065
     Dates: start: 20200202

REACTIONS (6)
  - Burning sensation [Unknown]
  - Eye irritation [Unknown]
  - Product substitution issue [Unknown]
  - Renal impairment [Unknown]
  - Oral discomfort [Unknown]
  - Blood glucose increased [Unknown]
